FAERS Safety Report 12600516 (Version 9)
Quarter: 2019Q1

REPORT INFORMATION
  Report Type: Spontaneous
  Country: US (occurrence: US)
  Receive Date: 20160727
  Receipt Date: 20190214
  Transmission Date: 20190417
  Serious: Yes (Death, Life-Threatening, Hospitalization, Other)
  Sender: FDA-Public Use
  Company Number: US-ELI_LILLY_AND_COMPANY-US201607011185

PATIENT
  Age: 62 Year
  Sex: Male

DRUGS (19)
  1. HYDROCHLOROTHIAZIDE. [Concomitant]
     Active Substance: HYDROCHLOROTHIAZIDE
     Indication: CARDIAC DISORDER
     Dosage: UNK, UNKNOWN
     Route: 048
  2. ASPIRIN ACETYLSALICYLIC ACID [Concomitant]
     Active Substance: ASPIRIN
     Indication: CARDIAC DISORDER
     Dosage: UNK, UNKNOWN
     Route: 048
  3. COREG [Concomitant]
     Active Substance: CARVEDILOL
     Indication: CARDIAC DISORDER
     Dosage: 1 DF, BID
     Route: 048
     Dates: start: 20140414
  4. COREG [Concomitant]
     Active Substance: CARVEDILOL
     Indication: CHEST PAIN
  5. LIPITOR [Concomitant]
     Active Substance: ATORVASTATIN CALCIUM
     Indication: CHEST PAIN
     Dosage: 60 MG, UNK
     Route: 065
  6. FISH OIL CONCENTRATE [Concomitant]
     Active Substance: FISH OIL
     Indication: CARDIAC DISORDER
     Dosage: UNK UNK, BID
     Route: 048
  7. NEXIUM SANDOZ [Concomitant]
     Indication: PRODUCT USED FOR UNKNOWN INDICATION
     Dosage: UNK, UNKNOWN
     Route: 048
  8. ZESTORETIC [Concomitant]
     Active Substance: HYDROCHLOROTHIAZIDE\LISINOPRIL
     Indication: PRODUCT USED FOR UNKNOWN INDICATION
     Dosage: 2 DF, DAILY
     Route: 048
     Dates: start: 20091204
  9. ALTACE [Concomitant]
     Active Substance: RAMIPRIL
     Indication: CHEST PAIN
  10. LIPITOR [Concomitant]
     Active Substance: ATORVASTATIN CALCIUM
     Indication: BLOOD CHOLESTEROL INCREASED
     Dosage: 1 DF, DAILY
     Route: 048
     Dates: start: 20140414
  11. ASPIRIN ACETYLSALICYLIC ACID [Concomitant]
     Active Substance: ASPIRIN
     Indication: CHEST PAIN
     Dosage: 325 MG, EACH MEAL AND INMEDIATELY
     Route: 048
     Dates: start: 20140414
  12. TYLENOL [Concomitant]
     Active Substance: ACETAMINOPHEN
     Indication: CHEST PAIN
  13. ALTACE [Concomitant]
     Active Substance: RAMIPRIL
     Indication: CARDIAC DISORDER
     Dosage: 1 DF, DAILY
     Route: 048
     Dates: start: 20180413
  14. ALTACE [Concomitant]
     Active Substance: RAMIPRIL
     Indication: BLOOD PRESSURE INCREASED
  15. FISH OIL CONCENTRATE [Concomitant]
     Active Substance: FISH OIL
     Dosage: 2 DF, BID
     Route: 048
  16. TYLENOL [Concomitant]
     Active Substance: ACETAMINOPHEN
     Indication: CARDIAC DISORDER
     Dosage: 2 DF, QID
     Route: 048
  17. NABUMETONE. [Concomitant]
     Active Substance: NABUMETONE
     Indication: PRODUCT USED FOR UNKNOWN INDICATION
     Dosage: 1 DF, BID
     Route: 048
  18. EFFIENT [Suspect]
     Active Substance: PRASUGREL HYDROCHLORIDE
     Indication: THROMBOSIS
     Dosage: UNK, UNKNOWN
     Route: 048
     Dates: start: 20140414
  19. LIPITOR [Concomitant]
     Active Substance: ATORVASTATIN CALCIUM
     Dosage: 80 MG, UNK
     Route: 048
     Dates: start: 20140414

REACTIONS (9)
  - Cardio-respiratory arrest [Unknown]
  - Cerebral haemorrhage [Fatal]
  - Pulmonary congestion [Unknown]
  - Cardiomegaly [Unknown]
  - Loss of consciousness [Unknown]
  - Hypokalaemia [Unknown]
  - Oxygen saturation decreased [Unknown]
  - Acidosis [Unknown]
  - Malaise [Unknown]

NARRATIVE: CASE EVENT DATE: 20140719
